FAERS Safety Report 8369891-6 (Version None)
Quarter: 2012Q2

REPORT INFORMATION
  Report Type: 
  Country: None (occurrence: None)
  Receive Date: 20120518
  Receipt Date: 20120511
  Transmission Date: 20120825
  Serious: Yes (Other)
  Sender: FDA-Public Use
  Company Number: US-AMGEN-USASP2012029901

PATIENT
  Age: 81 Year
  Sex: Female

DRUGS (1)
  1. ENBREL [Suspect]
     Indication: RHEUMATOID ARTHRITIS
     Dosage: 50 MG, QWK
     Dates: start: 20120509

REACTIONS (6)
  - NAUSEA [None]
  - DIZZINESS [None]
  - VOMITING [None]
  - DIARRHOEA [None]
  - PRURITUS GENERALISED [None]
  - HEADACHE [None]
